FAERS Safety Report 11997214 (Version 2)
Quarter: 2016Q1

REPORT INFORMATION
  Report Type: Spontaneous
  Country: US (occurrence: US)
  Receive Date: 20160203
  Receipt Date: 20160216
  Transmission Date: 20160526
  Serious: No
  Sender: FDA-Public Use
  Company Number: US-AMGEN-USASP2016011671

PATIENT
  Age: 52 Year
  Sex: Male

DRUGS (4)
  1. ENBREL [Suspect]
     Active Substance: ETANERCEPT
     Indication: RHEUMATOID ARTHRITIS
     Dosage: 50 MG, QWK
     Route: 065
     Dates: start: 2015
  2. TRIPTAN                            /00439301/ [Concomitant]
     Indication: BIPOLAR DISORDER
     Dosage: UNK
  3. PREDNISONE. [Concomitant]
     Active Substance: PREDNISONE
     Dosage: UNK
  4. TRAZODON [Concomitant]
     Active Substance: TRAZODONE HYDROCHLORIDE
     Dosage: UNK

REACTIONS (7)
  - Hallucination [Unknown]
  - Feeling abnormal [Unknown]
  - Emotional disorder [Unknown]
  - Parasite stool test positive [Unknown]
  - Abdominal pain upper [Unknown]
  - Product packaging quantity issue [Unknown]
  - Pain [Unknown]
